FAERS Safety Report 9115880 (Version 2)
Quarter: 2013Q2

REPORT INFORMATION
  Report Type: Spontaneous
  Country: US (occurrence: US)
  Receive Date: 20130225
  Receipt Date: 20130426
  Transmission Date: 20140414
  Serious: Yes (Disabling, Other)
  Sender: FDA-Public Use
  Company Number: US-GLAXOSMITHKLINE-A1013324A

PATIENT
  Age: 60 Year
  Sex: Female
  Weight: 63.7 kg

DRUGS (4)
  1. TYKERB [Suspect]
     Route: 048
  2. XELODA [Suspect]
     Route: 048
  3. RADIATION THERAPY [Suspect]
     Dates: start: 2012, end: 2012
  4. ZOMETA [Suspect]
     Route: 042

REACTIONS (3)
  - Osteonecrosis of jaw [Recovering/Resolving]
  - Condition aggravated [Recovering/Resolving]
  - Adverse event [Recovering/Resolving]
